FAERS Safety Report 21312115 (Version 1)
Quarter: 2022Q3

REPORT INFORMATION
  Report Type: Spontaneous
  Country: US (occurrence: None)
  Receive Date: 20220909
  Receipt Date: 20220909
  Transmission Date: 20221026
  Serious: No
  Sender: FDA-Public Use
  Company Number: US-ARIS GLOBAL-202204-0662

PATIENT
  Age: 65 Year
  Sex: Female

DRUGS (18)
  1. OXERVATE [Suspect]
     Active Substance: CENEGERMIN-BKBJ
     Indication: Neurotrophic keratopathy
     Route: 047
     Dates: start: 20220420
  2. OXERVATE [Suspect]
     Active Substance: CENEGERMIN-BKBJ
     Indication: Ulcerative keratitis
  3. OXERVATE [Suspect]
     Active Substance: CENEGERMIN-BKBJ
     Indication: Hypoaesthesia eye
  4. VITAMINS [Concomitant]
     Active Substance: VITAMINS
  5. DORZOLAMIDE\TIMOLOL [Concomitant]
     Active Substance: DORZOLAMIDE\TIMOLOL
     Indication: Ocular hypertension
     Dosage: 22.3-6.8/1
     Route: 047
     Dates: start: 20220222
  6. PREDNISOLONE ACETATE [Concomitant]
     Active Substance: PREDNISOLONE ACETATE
     Indication: Iritis
     Route: 047
     Dates: start: 20220328, end: 20220512
  7. PREDNISOLONE ACETATE [Concomitant]
     Active Substance: PREDNISOLONE ACETATE
     Dates: start: 20220526
  8. ASCORBIC ACID [Concomitant]
     Active Substance: ASCORBIC ACID
  9. FISH OIL [Concomitant]
     Active Substance: FISH OIL
     Dosage: 120-180 MG
  10. NEXIUM [Concomitant]
     Active Substance: ESOMEPRAZOLE MAGNESIUM
     Dosage: 20 MG SUSPENSION PACKET
  11. PRAVASTATIN SODIUM [Concomitant]
     Active Substance: PRAVASTATIN SODIUM
  12. LISINOPRIL [Concomitant]
     Active Substance: LISINOPRIL
  13. ASPIRIN [Concomitant]
     Active Substance: ASPIRIN
     Dosage: DELAYED RELEASE TABLET
  14. ATROPINE [Concomitant]
     Active Substance: ATROPINE
     Indication: Iritis
     Dosage: EVERYDAY, UP TO 4 TIMES A DAY
     Route: 047
     Dates: start: 20220222, end: 20220502
  15. VALACYCLOVIR [Concomitant]
     Active Substance: VALACYCLOVIR HYDROCHLORIDE
     Indication: Keratitis viral
     Route: 048
     Dates: start: 20211214
  16. BRIMONIDINE [Concomitant]
     Active Substance: BRIMONIDINE TARTRATE
     Indication: Ocular hypertension
     Route: 047
     Dates: start: 20220325, end: 20220512
  17. BESIVANCE [Concomitant]
     Active Substance: BESIFLOXACIN
     Indication: Keratitis
     Route: 047
     Dates: start: 20220214, end: 20220602
  18. COSOPT PF [Concomitant]
     Active Substance: DORZOLAMIDE HYDROCHLORIDE\TIMOLOL MALEATE
     Indication: Ocular hypertension
     Dates: start: 20220222

REACTIONS (2)
  - Off label use [Unknown]
  - Product dose omission issue [Unknown]

NARRATIVE: CASE EVENT DATE: 20220420
